FAERS Safety Report 15494179 (Version 1)
Quarter: 2018Q4

REPORT INFORMATION
  Report Type: Spontaneous
  Country: DK (occurrence: DK)
  Receive Date: 20181012
  Receipt Date: 20181012
  Transmission Date: 20190205
  Serious: Yes (Hospitalization)
  Sender: FDA-Public Use
  Company Number: DK-PFIZER INC-2018405234

PATIENT
  Age: 72 Year
  Sex: Female

DRUGS (12)
  1. IBRANCE [Suspect]
     Active Substance: PALBOCICLIB
     Indication: BREAST CANCER
     Dosage: 100 MG (DOSE: 1 TABLET DAY 1-21)
     Route: 048
     Dates: start: 20170614
  2. DENOSUMAB [Concomitant]
     Active Substance: DENOSUMAB
     Indication: BLOOD CALCIUM INCREASED
     Dosage: 1.7 ML, ONCE (CURRENTLY RECEIVING 17TH SERIE)
     Route: 058
  3. MORPHINE [Concomitant]
     Active Substance: MORPHINE
     Indication: PAIN
     Dosage: 5 MG, (A HALF TABLET AS NEEDED, MAX 3 TIMES DAILY)
     Route: 048
     Dates: start: 20170421
  4. DOMPERIDONE [Concomitant]
     Active Substance: DOMPERIDONE
     Indication: NAUSEA
     Dosage: 10 MG AS NEEDED, MAX 3 TIMES DAILY
     Route: 048
     Dates: start: 20170628
  5. PANTOPRAZOLE SODIUM SESQUIHYDRATE [Concomitant]
     Active Substance: PANTOPRAZOLE SODIUM
     Indication: PROPHYLAXIS AGAINST GASTROINTESTINAL ULCER
     Dosage: 40 MG, 1X/DAY
     Route: 048
     Dates: start: 20171031
  6. CONTALGIN [Concomitant]
     Active Substance: MORPHINE SULFATE
     Indication: PAIN
     Dosage: 20 MG, 1X/DAY
     Route: 048
     Dates: start: 20170614
  7. KALEORID [Concomitant]
     Active Substance: POTASSIUM CHLORIDE
     Indication: BLOOD POTASSIUM DECREASED
     Dosage: 3000 MG, 1X/DAY
     Route: 048
     Dates: start: 20171031
  8. MOVICOL [Concomitant]
     Active Substance: POLYETHYLENE GLYCOL 3350\POTASSIUM CHLORIDE\SODIUM BICARBONATE\SODIUM CHLORIDE
     Indication: CONSTIPATION
     Dosage: 1 DF, 1X/DAY
     Route: 048
     Dates: start: 20170316
  9. UNIKALK FORTE [Concomitant]
     Indication: MINERAL SUPPLEMENTATION
     Dosage: 4 DF, 1X/DAY
     Route: 048
     Dates: start: 20180828
  10. ONDANSETRON [Concomitant]
     Active Substance: ONDANSETRON
     Indication: NAUSEA
     Dosage: 16 MG, 1X/DAY
     Route: 048
     Dates: start: 20180417
  11. AMLODIPINE [Concomitant]
     Active Substance: AMLODIPINE BESYLATE
     Indication: HYPERTENSION
     Dosage: 5 MG, 1X/DAY
     Route: 048
     Dates: start: 20180423
  12. FULVESTRANT SANDOZ [Concomitant]
     Indication: BREAST CANCER
     Dosage: DOSE: 2 INJECTIONS ONCE (CURRENTLY RECEIVING THE 17TH SERIE)
     Route: 030

REACTIONS (2)
  - Urinary retention [Not Recovered/Not Resolved]
  - General physical health deterioration [Unknown]

NARRATIVE: CASE EVENT DATE: 201808
